FAERS Safety Report 20710629 (Version 1)
Quarter: 2022Q2

REPORT INFORMATION
  Report Type: Spontaneous
  Country: FR (occurrence: FR)
  Receive Date: 20220414
  Receipt Date: 20220414
  Transmission Date: 20220720
  Serious: Yes (Other)
  Sender: FDA-Public Use
  Company Number: None

PATIENT
  Age: 45 Year
  Sex: Female
  Weight: 62 kg

DRUGS (5)
  1. ETHINYL ESTRADIOL\LEVONORGESTREL [Suspect]
     Active Substance: ETHINYL ESTRADIOL\LEVONORGESTREL
     Indication: Contraception
     Dosage: 1 DF, 1X/DAY
     Route: 048
     Dates: start: 2011, end: 2011
  2. ESTRADIOL\NOMEGESTROL ACETATE [Suspect]
     Active Substance: ESTRADIOL\NOMEGESTROL ACETATE
     Indication: Contraception
     Dosage: 24 DAYS PER MONTH
     Route: 048
     Dates: start: 2011, end: 2011
  3. COLPRONE [Suspect]
     Active Substance: MEDROGESTONE
     Indication: Polycystic ovaries
     Dosage: 21 DAYS MONTHLY
     Route: 048
     Dates: start: 201604, end: 201611
  4. CYPROTERONE ACETATE [Suspect]
     Active Substance: CYPROTERONE ACETATE
     Indication: Polycystic ovaries
     Dosage: 20 DAYS MONTHLY
     Route: 048
     Dates: start: 201611, end: 20220309
  5. DIENOGEST\ESTRADIOL VALERATE [Suspect]
     Active Substance: DIENOGEST\ESTRADIOL VALERATE
     Indication: Contraception
     Dosage: 1 DF, 1X/DAY
     Route: 048
     Dates: start: 201108, end: 201604

REACTIONS (1)
  - Meningioma [Not Recovered/Not Resolved]

NARRATIVE: CASE EVENT DATE: 20200101
